FAERS Safety Report 17101599 (Version 1)
Quarter: 2019Q4

REPORT INFORMATION
  Report Type: Spontaneous
  Country: US (occurrence: US)
  Receive Date: 20191202
  Receipt Date: 20191202
  Transmission Date: 20200122
  Serious: No
  Sender: FDA-Public Use
  Company Number: US-GLAXOSMITHKLINE-US2019TSO207868

PATIENT
  Sex: Female

DRUGS (2)
  1. NIRAPARIB CAPSULE [Suspect]
     Active Substance: NIRAPARIB
     Indication: OVARIAN CANCER
     Dosage: 200 MG, QD
     Route: 048
     Dates: start: 201805
  2. NIRAPARIB CAPSULE [Suspect]
     Active Substance: NIRAPARIB
     Dosage: 100 MG, QD
     Route: 048
     Dates: end: 201901

REACTIONS (10)
  - Ageusia [Unknown]
  - Anosmia [Unknown]
  - Arthralgia [Recovering/Resolving]
  - Fatigue [Recovering/Resolving]
  - Carbohydrate antigen 125 increased [Unknown]
  - Anxiety [Recovering/Resolving]
  - Headache [Recovering/Resolving]
  - Blood pressure increased [Unknown]
  - Arthritis [Recovering/Resolving]
  - Dyssomnia [Recovering/Resolving]
